FAERS Safety Report 26011719 (Version 1)
Quarter: 2025Q4

REPORT INFORMATION
  Report Type: Spontaneous
  Country: EU (occurrence: EU)
  Receive Date: 20251107
  Receipt Date: 20251107
  Transmission Date: 20260117
  Serious: Yes (Hospitalization, Disabling, Other)
  Sender: NOVARTIS
  Company Number: None

PATIENT
  Age: 71 Year
  Sex: Female

DRUGS (18)
  1. ENTRESTO [Suspect]
     Active Substance: SACUBITRIL\VALSARTAN
     Indication: Cardiac failure
     Dosage: 1 DOSAGE FORM, Q12H (COMPRIMIDOS RECUBIERTOS CON PELICULA, 28 COMPRIMIDOS)
     Route: 048
     Dates: start: 20250925, end: 20251001
  2. ENTRESTO [Suspect]
     Active Substance: SACUBITRIL\VALSARTAN
     Indication: Systolic dysfunction
  3. ACETAMINOPHEN [Concomitant]
     Active Substance: ACETAMINOPHEN
     Indication: Product used for unknown indication
     Dosage: 1 G, Q8H (KERN PHARMA 1 G COMPRIMIDOS EFG, 40 COMPRIMIDOS)
     Route: 048
     Dates: start: 20250930
  4. CLOTRIMAZOLE [Concomitant]
     Active Substance: CLOTRIMAZOLE
     Indication: Product used for unknown indication
     Dosage: 1 DOSAGE FORM, Q12H (GINE-CANESMED CREMA VAGINAL EFG, 1 TUBO DE 20 G)
     Route: 067
     Dates: start: 20250926
  5. Alzil plus [Concomitant]
     Indication: Product used for unknown indication
     Dosage: 1 DOSAGE FORM, Q24H (COMPRIMIDOS RECUBIERTOS CON PELICULA, 30 COMPRIMIDOS)
     Route: 048
     Dates: start: 20250925
  6. METAMIZOLE SODIUM [Concomitant]
     Active Substance: METAMIZOLE SODIUM
     Indication: Product used for unknown indication
     Dosage: 1 DOSAGE FORM, Q24H (SOLUCION INYECTABLE Y PARA PERFUSION EFG 5 AMPOLLAS DE 5 ML)
     Route: 042
     Dates: start: 20250507
  7. LEVOTHYROXINE SODIUM [Concomitant]
     Active Substance: LEVOTHYROXINE SODIUM
     Indication: Product used for unknown indication
     Dosage: 100 UG, Q24H (COMPRIMIDOS , 100 COMPRIMIDOS)
     Route: 048
     Dates: start: 20250506
  8. Premax [Concomitant]
     Indication: Product used for unknown indication
     Dosage: 75 MG, Q12H (COMPRIMIDOS EFG 56 COMPRIMIDOS)
     Route: 048
     Dates: start: 20250228
  9. LORMETAZEPAM [Concomitant]
     Active Substance: LORMETAZEPAM
     Indication: Product used for unknown indication
     Dosage: 1 MG, Q24H (COMPRIMIDOS EFG, 30 COMPRIMIDOS)
     Route: 048
     Dates: start: 20250128
  10. SYNJARDY [Concomitant]
     Active Substance: EMPAGLIFLOZIN\METFORMIN HYDROCHLORIDE
     Indication: Product used for unknown indication
     Dosage: 1 DOSAGE FORM, Q12H (COMPRIMIDOS RECUBIERTOS CON PELICULA, 60 COMPRIMIDOS)
     Route: 048
     Dates: start: 20250117
  11. FUROSEMIDE [Concomitant]
     Active Substance: FUROSEMIDE
     Indication: Product used for unknown indication
     Dosage: 40 MG, Q12H (KERN PHARMA COMPRIMIDOS EFG, 30 COMPRIMIDOS)
     Route: 048
     Dates: start: 20241016
  12. SPIRONOLACTONE [Concomitant]
     Active Substance: SPIRONOLACTONE
     Indication: Product used for unknown indication
     Dosage: 50 MG, Q24H (COMPRIMIDOS RECUBIERTOS EFG, 50 COMPRIMIDOS) (2 COMPRIMIDOS DE 25 MG EN LA COMIDA)
     Route: 048
     Dates: start: 20241016
  13. Deprax [Concomitant]
     Indication: Product used for unknown indication
     Dosage: 100 MG, Q24H (COMPRIMIDOS RECUBIERTOS CON PELICULA EFG, 30 COMPRIMIDOS)
     Route: 048
     Dates: start: 20241014
  14. EDOXABAN TOSYLATE [Concomitant]
     Active Substance: EDOXABAN TOSYLATE
     Indication: Product used for unknown indication
     Dosage: 60 MG, Q24H (COMPRIMIDOS RECUBIERTOS CON PELICULA, 28 COMPRIMIDOS)
     Route: 048
     Dates: start: 20220708
  15. METAMIZOL [Concomitant]
     Active Substance: METAMIZOLE SODIUM
     Indication: Product used for unknown indication
     Dosage: 575 MG, Q8H (KERN PHARMA CAPSULAS DURAS EFG, 20 C?PSULAS)
     Route: 048
     Dates: start: 20200227
  16. OMEPRAZOLE [Concomitant]
     Active Substance: OMEPRAZOLE
     Indication: Product used for unknown indication
     Dosage: 20 MG, Q24H (CAPSULAS DURAS GASTRORESISTENTES EFG , 28 C?PSULAS)
     Route: 048
     Dates: start: 20190920
  17. ASPIRIN [Concomitant]
     Active Substance: ASPIRIN
     Indication: Product used for unknown indication
     Dosage: 100 MG, Q24H (COMPRIMIDOS GASTRORRESISTENTES EFG, 30 COMPRIMIDOS (PVC- ALUMINIO))
     Route: 048
     Dates: start: 20190920
  18. BISOPROLOL FUMARATE [Concomitant]
     Active Substance: BISOPROLOL FUMARATE
     Indication: Product used for unknown indication
     Dosage: 5 MG, Q12H (COMPRIMIDOS EFG , 60 COMPRIMIDOS (BLISTER PVC/PVDC-ALUMINIO))
     Route: 048
     Dates: start: 20190920

REACTIONS (4)
  - Hypotension [Recovered/Resolved]
  - Dizziness [Recovered/Resolved]
  - Fall [Recovered/Resolved]
  - Pelvic fracture [Recovered/Resolved]

NARRATIVE: CASE EVENT DATE: 20250928
